FAERS Safety Report 6672614-X (Version None)
Quarter: 2010Q2

REPORT INFORMATION
  Report Type: 
  Country: None (occurrence: None)
  Receive Date: 20100408
  Receipt Date: 20100330
  Transmission Date: 20101027
  Serious: Yes (Other)
  Sender: FDA-Public Use
  Company Number: US-JNJFOC-20100400528

PATIENT
  Age: 69 Year
  Sex: Female
  Weight: 100.7 kg

DRUGS (3)
  1. TYLENOL [Suspect]
     Route: 048
  2. TYLENOL [Suspect]
     Indication: ARTHRITIS
     Route: 048
  3. HYDROCHLOROTHIAZIDE [Concomitant]
     Indication: HYPERTENSION

REACTIONS (4)
  - CYSTITIS [None]
  - GASTRITIS [None]
  - INFLUENZA [None]
  - PRODUCT QUALITY ISSUE [None]
